FAERS Safety Report 20296627 (Version 2)
Quarter: 2022Q1

REPORT INFORMATION
  Report Type: Spontaneous
  Country: JP (occurrence: JP)
  Receive Date: 20220105
  Receipt Date: 20220121
  Transmission Date: 20220424
  Serious: Yes (Other)
  Sender: FDA-Public Use
  Company Number: JP-TAKEDA-2021TJP140078

PATIENT
  Age: 50 Year
  Sex: Female

DRUGS (2)
  1. ALUNBRIG [Suspect]
     Active Substance: BRIGATINIB
     Indication: Lung adenocarcinoma stage IV
     Dosage: 90 MILLIGRAM, QD
     Route: 048
     Dates: start: 20211021, end: 20211029
  2. ALUNBRIG [Suspect]
     Active Substance: BRIGATINIB
     Dosage: 180 MILLIGRAM
     Route: 048
     Dates: start: 20211030, end: 20211111

REACTIONS (4)
  - Lung adenocarcinoma stage IV [Unknown]
  - White blood cell count decreased [Recovering/Resolving]
  - Blood creatine phosphokinase increased [Recovered/Resolved]
  - Neutrophil count decreased [Unknown]

NARRATIVE: CASE EVENT DATE: 20211028
